FAERS Safety Report 4391771-1 (Version None)
Quarter: 2004Q3

REPORT INFORMATION
  Report Type: 
  Country: None (occurrence: None)
  Receive Date: 20040707
  Receipt Date: 20030407
  Transmission Date: 20050211
  Serious: Yes (Disabling)
  Sender: FDA-Public Use
  Company Number: US-MERCK-0304USA00746

PATIENT
  Age: 32 Year
  Sex: Female
  Weight: 90 kg

DRUGS (5)
  1. ANALGESIC OR ANESTHETIC (UNSPECIFIED) [Concomitant]
     Route: 065
  2. ANTIMICROBIAL (UNSPECIFIED) [Concomitant]
     Route: 065
  3. BUTALBITAL [Concomitant]
     Route: 065
  4. VIOXX [Suspect]
     Indication: FIBROMYALGIA
     Route: 048
     Dates: start: 20000101, end: 20010101
  5. VIOXX [Suspect]
     Indication: PAIN
     Route: 048
     Dates: start: 20000101, end: 20010101

REACTIONS (23)
  - ABDOMINAL PAIN LOWER [None]
  - CARDIAC MURMUR [None]
  - CHEST WALL PAIN [None]
  - CONSTIPATION [None]
  - EMOTIONAL DISTRESS [None]
  - FLANK PAIN [None]
  - GASTROOESOPHAGEAL REFLUX DISEASE [None]
  - HAEMATURIA [None]
  - HAEMORRHOIDS [None]
  - INJURY [None]
  - INTERVERTEBRAL DISC PROTRUSION [None]
  - IRRITABLE BOWEL SYNDROME [None]
  - MICTURITION URGENCY [None]
  - NAUSEA [None]
  - NEPHROLITHIASIS [None]
  - NON-CARDIAC CHEST PAIN [None]
  - OESOPHAGEAL SPASM [None]
  - PHARYNGOLARYNGEAL PAIN [None]
  - POLLAKIURIA [None]
  - PYELONEPHRITIS [None]
  - RECTAL HAEMORRHAGE [None]
  - RENAL COLIC [None]
  - SKIN DISCOLOURATION [None]
